FAERS Safety Report 15537814 (Version 2)
Quarter: 2018Q4

REPORT INFORMATION
  Report Type: Spontaneous
  Country: AT (occurrence: AT)
  Receive Date: 20181022
  Receipt Date: 20181108
  Transmission Date: 20190205
  Serious: Yes (Other)
  Sender: FDA-Public Use
  Company Number: AT-AMGEN-AUTSP2018146539

PATIENT
  Age: 68 Year
  Sex: Female
  Weight: 74 kg

DRUGS (7)
  1. SEREVENT DISKUS [Concomitant]
     Active Substance: SALMETEROL XINAFOATE
     Indication: CHRONIC OBSTRUCTIVE PULMONARY DISEASE
     Dosage: UNK
     Route: 055
  2. PROCORALAN [Suspect]
     Active Substance: IVABRADINE
     Dosage: 2.5 MG, BID
     Route: 048
     Dates: start: 20181013, end: 20181020
  3. PROCORALAN [Suspect]
     Active Substance: IVABRADINE
     Dosage: 2.5 MG, TID
     Route: 048
     Dates: start: 20181021
  4. THYREX [Concomitant]
     Active Substance: LEVOTHYROXINE SODIUM
     Indication: THYROID CANCER
     Dosage: UNK
     Route: 048
     Dates: start: 1999
  5. PROCORALAN [Suspect]
     Active Substance: IVABRADINE
     Indication: CARDIAC DISORDER
     Dosage: 2.5 MG, BID
     Route: 048
     Dates: start: 2013, end: 2017
  6. SPIRIVA [Concomitant]
     Active Substance: TIOTROPIUM BROMIDE MONOHYDRATE
     Indication: CHRONIC OBSTRUCTIVE PULMONARY DISEASE
     Dosage: UNK
     Route: 055
  7. PROCORALAN [Suspect]
     Active Substance: IVABRADINE
     Dosage: 2.5 MG, TID
     Route: 048
     Dates: start: 2017, end: 20181012

REACTIONS (8)
  - Rash [Not Recovered/Not Resolved]
  - Diarrhoea [Not Recovered/Not Resolved]
  - Initial insomnia [Not Recovered/Not Resolved]
  - Dizziness [Recovering/Resolving]
  - Product use issue [Recovered/Resolved]
  - Hypoaesthesia [Recovering/Resolving]
  - Heart rate increased [Not Recovered/Not Resolved]
  - Dyspnoea [Not Recovered/Not Resolved]

NARRATIVE: CASE EVENT DATE: 2013
